FAERS Safety Report 7817649-6 (Version None)
Quarter: 2011Q4

REPORT INFORMATION
  Report Type: 
  Country: None (occurrence: None)
  Receive Date: 20111017
  Receipt Date: 20111010
  Transmission Date: 20120403
  Serious: Yes (Other)
  Sender: FDA-Public Use
  Company Number: US-UCBSA-042649

PATIENT

DRUGS (7)
  1. MAXALT [Concomitant]
  2. PINDOLOL [Concomitant]
  3. LIPITOR [Concomitant]
  4. METHSCOPOLAMINE [Concomitant]
  5. VIVELLE [Concomitant]
  6. LEXAPRO [Concomitant]
  7. VIMPAT [Suspect]

REACTIONS (1)
  - SJOGREN'S SYNDROME [None]
